FAERS Safety Report 17202871 (Version 1)
Quarter: 2019Q4

REPORT INFORMATION
  Report Type: Spontaneous
  Country: SE (occurrence: SE)
  Receive Date: 20191226
  Receipt Date: 20191226
  Transmission Date: 20200122
  Serious: Yes (Hospitalization)
  Sender: FDA-Public Use
  Company Number: SE-009507513-1912SWE008228

PATIENT
  Age: 55 Year
  Sex: Female

DRUGS (3)
  1. LOSARTAN POTASSIUM. [Suspect]
     Active Substance: LOSARTAN POTASSIUM
     Dosage: 5 GRAM
     Route: 048
     Dates: start: 20190805, end: 20190805
  2. PROPAVAN [Suspect]
     Active Substance: PROPIOMAZINE
     Dosage: 150 PROPAVAN
     Route: 048
     Dates: start: 20190805, end: 20190805
  3. FURIX (FUROSEMIDE) [Suspect]
     Active Substance: FUROSEMIDE
     Dosage: 800 MILLIGRAM
     Dates: start: 20190805, end: 20190805

REACTIONS (8)
  - Intentional self-injury [Unknown]
  - Abdominal tenderness [Unknown]
  - Fatigue [Unknown]
  - Blood pressure decreased [Unknown]
  - Electrocardiogram QT prolonged [Unknown]
  - Intentional overdose [Unknown]
  - Diarrhoea [Unknown]
  - Vomiting [Unknown]

NARRATIVE: CASE EVENT DATE: 20190805
